FAERS Safety Report 15798060 (Version 4)
Quarter: 2019Q2

REPORT INFORMATION
  Report Type: Spontaneous
  Country: US (occurrence: US)
  Receive Date: 20190108
  Receipt Date: 20190607
  Transmission Date: 20190711
  Serious: Yes (Other)
  Sender: FDA-Public Use
  Company Number: US-PFIZER INC-2019008369

PATIENT
  Age: 39 Year
  Sex: Female

DRUGS (1)
  1. XELJANZ [Suspect]
     Active Substance: TOFACITINIB CITRATE
     Dosage: 10 MG, 2X/DAY
     Dates: start: 201810

REACTIONS (8)
  - Off label use [Unknown]
  - Haematochezia [Recovering/Resolving]
  - Product use issue [Unknown]
  - Fatigue [Recovering/Resolving]
  - Condition aggravated [Unknown]
  - Weight decreased [Recovering/Resolving]
  - Inflammation [Not Recovered/Not Resolved]
  - Abdominal pain [Recovered/Resolved]
